FAERS Safety Report 26123332 (Version 2)
Quarter: 2025Q4

REPORT INFORMATION
  Report Type: Spontaneous
  Country: US (occurrence: US)
  Receive Date: 20251204
  Receipt Date: 20251221
  Transmission Date: 20260117
  Serious: No
  Sender: GALDERMA
  Company Number: US-GALDERMA-US2025024007

PATIENT

DRUGS (1)
  1. NEMLUVIO [Suspect]
     Active Substance: NEMOLIZUMAB-ILTO
     Indication: Neurodermatitis
     Dosage: UNK
     Route: 058
     Dates: start: 2025, end: 2025

REACTIONS (2)
  - Product dose omission issue [Recovered/Resolved]
  - Device use issue [Recovered/Resolved]

NARRATIVE: CASE EVENT DATE: 20251119
